FAERS Safety Report 5282144-8 (Version None)
Quarter: 2007Q1

REPORT INFORMATION
  Report Type: 
  Country: None (occurrence: None)
  Receive Date: 20070330
  Receipt Date: 20061106
  Transmission Date: 20070707
  Serious: Yes (Death, Other)
  Sender: FDA-Public Use
  Company Number: US-PFIZER INC-2006139274

PATIENT
  Sex: Male

DRUGS (3)
  1. SUTENT [Suspect]
     Indication: RENAL CELL CARCINOMA STAGE UNSPECIFIED
     Route: 048
     Dates: start: 20060601, end: 20060714
  2. MAGNESIUM OXIDE [Concomitant]
  3. CALCIUM [Concomitant]

REACTIONS (14)
  - ANOREXIA [None]
  - BLOOD CALCIUM INCREASED [None]
  - BLOOD CREATININE INCREASED [None]
  - BLOOD PRESSURE INCREASED [None]
  - CHILLS [None]
  - DEATH [None]
  - DEHYDRATION [None]
  - DISEASE PROGRESSION [None]
  - DISSEMINATED INTRAVASCULAR COAGULATION [None]
  - DYSGEUSIA [None]
  - FATIGUE [None]
  - FLANK PAIN [None]
  - HYPOMAGNESAEMIA [None]
  - THROMBOCYTOPENIA [None]
